FAERS Safety Report 23103473 (Version 1)
Quarter: 2023Q4

REPORT INFORMATION
  Report Type: Spontaneous
  Country: US (occurrence: US)
  Receive Date: 20231025
  Receipt Date: 20231025
  Transmission Date: 20240109
  Serious: Yes (Hospitalization)
  Sender: FDA-Public Use
  Company Number: US-ALEMBIC PHARMACUETICALS LIMITED-2023SCAL000986

PATIENT

DRUGS (3)
  1. LITHIUM CARBONATE [Interacting]
     Active Substance: LITHIUM CARBONATE
     Indication: Mania
     Dosage: UNK
     Route: 065
  2. LACTULOSE [Interacting]
     Active Substance: LACTULOSE
     Indication: Constipation
     Route: 065
  3. LACTULOSE [Interacting]
     Active Substance: LACTULOSE
     Indication: Hyperammonaemia

REACTIONS (2)
  - Drug interaction [Unknown]
  - Toxicity to various agents [Unknown]
